FAERS Safety Report 11167095 (Version 1)
Quarter: 2015Q2

REPORT INFORMATION
  Report Type: Report from Study
  Country: FR (occurrence: None)
  Receive Date: 20150603
  Receipt Date: 20150603
  Transmission Date: 20150821
  Serious: Yes (Death)
  Sender: FDA-Public Use
  Company Number: 2014DEPFR00599

PATIENT
  Age: 57 Year
  Sex: Female

DRUGS (3)
  1. DEPOCYT(E) (CYTARABINE) LIPOSOME INJECTABLE SUSPENSION, MG [Suspect]
     Active Substance: CYTARABINE
     Indication: METASTASES TO MENINGES
     Dosage: 50 MG EVERY 14 DAYS (+/-2) FOR 5 CYCLES (FREQUENCY PER PROTOCOL)
     Route: 037
     Dates: start: 20120503, end: 2012
  2. CAPECITABINE (CAPECITABINE) (CAPECITABINE) [Suspect]
     Active Substance: CAPECITABINE
     Indication: NEOPLASM MALIGNANT
     Dosage: FREQUENCY UNKNOWN
     Route: 048
     Dates: start: 20120423, end: 20130115
  3. LAPATINIB [Concomitant]
     Active Substance: LAPATINIB

REACTIONS (1)
  - Chills [None]

NARRATIVE: CASE EVENT DATE: 20130116
